FAERS Safety Report 6239715-1 (Version None)
Quarter: 2009Q2

REPORT INFORMATION
  Report Type: 
  Country: None (occurrence: None)
  Receive Date: 20090619
  Receipt Date: 20090603
  Transmission Date: 20091009
  Serious: Yes (Death, Other)
  Sender: FDA-Public Use
  Company Number: 2009BI008866

PATIENT
  Age: 51 Year
  Sex: Male

DRUGS (11)
  1. ZEVALIN [Suspect]
     Indication: B-CELL LYMPHOMA
     Dosage: 32 MCI; 1X; IV
     Route: 042
     Dates: start: 20090212, end: 20090212
  2. RITUXIMAB [Concomitant]
  3. FLUDARABINE PHOSPHATE [Concomitant]
  4. MELPHALAN [Concomitant]
  5. METHOTREXATE [Concomitant]
  6. OMEPRAZOL [Concomitant]
  7. ACTOCORTINA [Concomitant]
  8. CYCLOSPORINE [Concomitant]
  9. MEROPENEM [Concomitant]
  10. TEICOPLANINE [Concomitant]
  11. AMIODARONE HCL [Concomitant]

REACTIONS (7)
  - ASPERGILLOSIS [None]
  - DIARRHOEA [None]
  - LIVER INJURY [None]
  - MUCOSAL INFLAMMATION [None]
  - MULTI-ORGAN FAILURE [None]
  - NEUTROPENIA [None]
  - PNEUMONIA [None]
